FAERS Safety Report 9166549 (Version 2)
Quarter: 2013Q2

REPORT INFORMATION
  Report Type: Spontaneous
  Country: US (occurrence: US)
  Receive Date: 20130315
  Receipt Date: 20130404
  Transmission Date: 20140414
  Serious: Yes (Other)
  Sender: FDA-Public Use
  Company Number: US-ASTRAZENECA-2013SE10418

PATIENT
  Age: 48 Year
  Sex: Female
  Weight: 84.4 kg

DRUGS (11)
  1. NEXIUM [Suspect]
     Indication: GASTROOESOPHAGEAL REFLUX DISEASE
     Route: 048
     Dates: start: 20061101
  2. NEXIUM [Suspect]
     Indication: HIATUS HERNIA
     Route: 048
     Dates: start: 20061101
  3. NEXIUM [Suspect]
     Indication: GASTROOESOPHAGEAL REFLUX DISEASE
     Route: 048
     Dates: start: 2009
  4. NEXIUM [Suspect]
     Indication: HIATUS HERNIA
     Route: 048
     Dates: start: 2009
  5. NEXIUM [Suspect]
     Indication: GASTROOESOPHAGEAL REFLUX DISEASE
     Route: 048
     Dates: start: 201301
  6. NEXIUM [Suspect]
     Indication: HIATUS HERNIA
     Route: 048
     Dates: start: 201301
  7. LYRICA [Concomitant]
     Indication: FIBROMYALGIA
     Dates: start: 2007
  8. LEXAPRO [Concomitant]
     Indication: DEPRESSION
     Dates: start: 2007
  9. WELLBUTRIN [Concomitant]
     Indication: DEPRESSION
     Dates: start: 2007
  10. VALIUM [Concomitant]
     Indication: DIZZINESS
     Dosage: 5-10 MG PRN
     Dates: start: 1998
  11. PREMORIN [Concomitant]
     Indication: HORMONE THERAPY
     Dates: start: 1995

REACTIONS (8)
  - Bedridden [Unknown]
  - Bone pain [Unknown]
  - Fatigue [Unknown]
  - Influenza like illness [Unknown]
  - Myalgia [Unknown]
  - Nausea [Unknown]
  - Headache [Unknown]
  - Diarrhoea [Unknown]
